FAERS Safety Report 11770282 (Version 1)
Quarter: 2015Q4

REPORT INFORMATION
  Report Type: Spontaneous
  Country: US (occurrence: US)
  Receive Date: 20151123
  Receipt Date: 20151123
  Transmission Date: 20160304
  Serious: No
  Sender: FDA-Public Use
  Company Number: US-PRINSTON PHARMACEUTICAL INC.-2015PRN00064

PATIENT
  Age: 30 Year
  Sex: Female
  Weight: 63.49 kg

DRUGS (5)
  1. PAROXETINE [Suspect]
     Active Substance: PAROXETINE\PAROXETINE HYDROCHLORIDE
     Indication: ANXIETY
     Dosage: 30 MG, 1X/DAY
     Route: 048
     Dates: start: 20150809
  2. VITAMIN D [Concomitant]
     Active Substance: CHOLECALCIFEROL
  3. UNSPECIFIED VITAMINS [Concomitant]
     Active Substance: VITAMINS
  4. MULTIVITAMIN [Concomitant]
     Active Substance: VITAMINS
     Dosage: UNK, 1X/DAY
  5. VITAMIN B12 [Concomitant]
     Active Substance: CYANOCOBALAMIN

REACTIONS (8)
  - Fatigue [Not Recovered/Not Resolved]
  - No reaction on previous exposure to drug [None]
  - Product substitution issue [Not Recovered/Not Resolved]
  - Fatigue [None]
  - Nausea [Not Recovered/Not Resolved]
  - Abdominal pain upper [Not Recovered/Not Resolved]
  - Diarrhoea [Not Recovered/Not Resolved]
  - Reaction to drug excipients [None]

NARRATIVE: CASE EVENT DATE: 20150809
